FAERS Safety Report 21176804 (Version 1)
Quarter: 2022Q3

REPORT INFORMATION
  Report Type: Spontaneous
  Country: ES (occurrence: ES)
  Receive Date: 20220805
  Receipt Date: 20220805
  Transmission Date: 20221027
  Serious: Yes (Other)
  Sender: FDA-Public Use
  Company Number: None

PATIENT

DRUGS (18)
  1. ZEJULA [Suspect]
     Active Substance: NIRAPARIB
     Indication: Serous cystadenocarcinoma ovary
     Dosage: UNK
     Route: 048
     Dates: start: 20220714
  2. FLUOXETINE [Concomitant]
     Active Substance: FLUOXETINE HYDROCHLORIDE
     Indication: Asthma
     Dosage: UNK((20.0 MG DECE))
     Route: 048
     Dates: start: 20201002
  3. ESLICARBAZEPINE ACETATE [Concomitant]
     Active Substance: ESLICARBAZEPINE ACETATE
     Indication: Asthma
     Dosage: 800 MG((800.0 MG C/24 H))
     Route: 048
     Dates: start: 20201002
  4. ACETAMINOPHEN [Concomitant]
     Active Substance: ACETAMINOPHEN
     Indication: Tobacco abuse
     Dosage: UNK(500.0 MG DECOCE)
     Route: 048
     Dates: start: 20201001
  5. FUROSEMIDE [Concomitant]
     Active Substance: FUROSEMIDE
     Indication: Tobacco abuse
     Dosage: UNK(40.0 MG A-DE)
     Route: 048
     Dates: start: 20201002
  6. CLOTRIMAZOLE [Concomitant]
     Active Substance: CLOTRIMAZOLE
     Indication: Dermatitis
     Dosage: UNK(1.0 APPLIC W/12 H)
     Route: 061
     Dates: start: 20220622
  7. CALCIUM CARBONATE\CHOLECALCIFEROL [Concomitant]
     Active Substance: CALCIUM CARBONATE\CHOLECALCIFEROL
     Indication: Tobacco abuse
     Dosage: UNK(1.0 COMP EC)
     Route: 048
     Dates: start: 20210121
  8. TEBARAT [Concomitant]
     Indication: Bronchitis
     Dosage: UNK(1.0 GTS C/12 H)
     Route: 050
     Dates: start: 20220303
  9. OMEPRAZOLE [Concomitant]
     Active Substance: OMEPRAZOLE
     Indication: Asthma
     Dosage: UNK(20.0 MG A-DE)
     Route: 048
     Dates: start: 20210622
  10. CLOPIDOGREL [Concomitant]
     Active Substance: CLOPIDOGREL BISULFATE
     Indication: Bronchitis
     Dosage: UNK(75.0 MG DE)
     Route: 048
     Dates: start: 20201002
  11. ALPRAZOLAM [Concomitant]
     Active Substance: ALPRAZOLAM
     Indication: Anxiety
     Dosage: UNK(0.5 MG DECOCE)
     Route: 048
     Dates: start: 20210121
  12. OXYCONTIN [Concomitant]
     Active Substance: OXYCODONE HYDROCHLORIDE
     Indication: Vitamin D decreased
     Dosage: UNK(5.0 MG DECE)
     Route: 048
     Dates: start: 20220303
  13. CRESTOR [Concomitant]
     Active Substance: ROSUVASTATIN CALCIUM
     Indication: Asthma
     Dosage: UNK(10.0 MG CE)
     Route: 048
     Dates: start: 20201001
  14. RIVOTRIL [Concomitant]
     Active Substance: CLONAZEPAM
     Indication: Asthma
     Dosage: 2 MG, TID(2.0 MG EVERY 8 HOURS)
     Route: 048
     Dates: start: 20210621
  15. ALLOPURINOL [Concomitant]
     Active Substance: ALLOPURINOL
     Indication: Asthma
     Dosage: UNK(100.0 MG DE)
     Route: 048
     Dates: start: 20201002
  16. LORAZEPAM [Concomitant]
     Active Substance: LORAZEPAM
     Indication: Tobacco abuse
     Dosage: UNK(1.0 MG DECE)
     Route: 048
     Dates: start: 20201001
  17. LEVOSULPIRIDE [Concomitant]
     Active Substance: LEVOSULPIRIDE
     Indication: Anxiety
     Dosage: UNK(25.0 MG DE)
     Route: 048
     Dates: start: 20210122
  18. AMLODIPINE [Concomitant]
     Active Substance: AMLODIPINE BESYLATE
     Indication: Anxiety
     Dosage: UNK(10.0 MG CE)
     Route: 048
     Dates: start: 20210121

REACTIONS (3)
  - Nystagmus [Not Recovered/Not Resolved]
  - Diplopia [Recovering/Resolving]
  - Vision blurred [Recovering/Resolving]

NARRATIVE: CASE EVENT DATE: 20220714
